FAERS Safety Report 6869078-X (Version None)
Quarter: 2010Q3

REPORT INFORMATION
  Report Type: 
  Country: None (occurrence: None)
  Receive Date: 20100722
  Receipt Date: 20080714
  Transmission Date: 20110219
  Serious: No
  Sender: FDA-Public Use
  Company Number: US-PFIZER INC-2008059211

PATIENT
  Sex: Female
  Weight: 96.16 kg

DRUGS (8)
  1. CHANTIX [Suspect]
     Indication: SMOKING CESSATION THERAPY
     Dates: start: 20080707
  2. PROZAC [Concomitant]
     Dates: start: 20080707
  3. AMOXICILLIN [Concomitant]
     Dates: start: 20080707
  4. LORATADINE [Concomitant]
     Dates: start: 20080707
  5. OMEPRAZOLE [Concomitant]
     Dates: start: 20080707
  6. NASACORT [Concomitant]
     Dates: start: 20080707
  7. ADVAIR DISKUS 100/50 [Concomitant]
     Dates: start: 20080707
  8. ALBUTEROL [Concomitant]
     Dates: start: 20080707

REACTIONS (2)
  - INCORRECT DOSE ADMINISTERED [None]
  - NAUSEA [None]
